FAERS Safety Report 6043541-6 (Version None)
Quarter: 2009Q1

REPORT INFORMATION
  Report Type: 
  Country: None (occurrence: None)
  Receive Date: 20090120
  Receipt Date: 20090113
  Transmission Date: 20090719
  Serious: Yes (Other)
  Sender: FDA-Public Use
  Company Number: US-BAYER-200840006NA

PATIENT
  Age: 28 Year
  Sex: Female
  Weight: 117 kg

DRUGS (4)
  1. MIRENA [Suspect]
     Indication: CONTRACEPTION
     Route: 015
     Dates: start: 20081203, end: 20081203
  2. MIRENA [Suspect]
     Route: 015
     Dates: start: 20081203
  3. ZYRTEC [Concomitant]
     Indication: SINUS CONGESTION
     Route: 048
  4. EFFEXOR XR [Concomitant]
     Indication: DEPRESSION
     Route: 048
     Dates: start: 20081112

REACTIONS (2)
  - INTRA-UTERINE CONTRACEPTIVE DEVICE EXPELLED [None]
  - UTERINE RUPTURE [None]
